FAERS Safety Report 6152302-9 (Version None)
Quarter: 2009Q2

REPORT INFORMATION
  Report Type: 
  Country: None (occurrence: None)
  Receive Date: 20090410
  Receipt Date: 20090401
  Transmission Date: 20091009
  Serious: Yes (Death)
  Sender: FDA-Public Use
  Company Number: CN-MERCK-0904CHN00012

PATIENT
  Age: 21 Year
  Sex: Male

DRUGS (2)
  1. PRIMAXIN [Suspect]
     Indication: LUNG INFECTION
     Route: 042
     Dates: start: 20070731
  2. TINIDAZOLE [Concomitant]
     Indication: LUNG INFECTION
     Route: 065
     Dates: start: 20070728

REACTIONS (1)
  - PNEUMONIA [None]
